FAERS Safety Report 6958617-6 (Version None)
Quarter: 2010Q3

REPORT INFORMATION
  Report Type: 
  Country: None (occurrence: None)
  Receive Date: 20100831
  Receipt Date: 20100818
  Transmission Date: 20110219
  Serious: Yes (Hospitalization)
  Sender: FDA-Public Use
  Company Number: PL-ROCHE-723918

PATIENT
  Sex: Female
  Weight: 66 kg

DRUGS (9)
  1. TRASTUZUMAB [Suspect]
     Dosage: FORM: VIAL, LOADING DOSE
     Route: 042
     Dates: start: 20100705, end: 20100705
  2. TRASTUZUMAB [Suspect]
     Dosage: MAINTENENCE DOSE, FORM: VIAL, LAST DOSE PRIOR TO SAE: 26 JUL 2010, DOSE; 6 MG/KG,
     Route: 042
  3. BEVACIZUMAB [Suspect]
     Dosage: FORM: VIALS, DOSE: 15 MG/KG. LAST DOSE PRIOR TO SAE: 26 JUL 2010
     Route: 042
     Dates: start: 20100705
  4. DOCETAXEL [Suspect]
     Dosage: FORM: VIAL, DOSE: 75 MG/M2
     Route: 042
     Dates: start: 20100705, end: 20100726
  5. DOCETAXEL [Suspect]
     Route: 042
     Dates: start: 20100816
  6. CARBOPLATIN [Suspect]
     Dosage: FORM: VIAL, DOSE: 6 AUC
     Route: 042
     Dates: start: 20100705, end: 20100726
  7. CARBOPLATIN [Suspect]
     Dosage: DOSE; 5 AUC
     Route: 042
     Dates: start: 20100816
  8. AXTIL [Concomitant]
     Dates: start: 20100701
  9. ZYRTEC [Concomitant]
     Dates: start: 20100525, end: 20100701

REACTIONS (2)
  - DIARRHOEA [None]
  - SYNCOPE [None]
